FAERS Safety Report 25123415 (Version 1)
Quarter: 2025Q1

REPORT INFORMATION
  Report Type: Spontaneous
  Country: US (occurrence: US)
  Receive Date: 20250326
  Receipt Date: 20250326
  Transmission Date: 20250409
  Serious: Yes (Other)
  Sender: BAYER HEALTHCARE PHARMACEUTICALS INC.
  Company Number: US-BAYER-2025A037048

PATIENT
  Sex: Female

DRUGS (1)
  1. MIRENA [Suspect]
     Active Substance: LEVONORGESTREL
     Dosage: 20?G/DAY
     Route: 015
     Dates: start: 202302, end: 202502

REACTIONS (6)
  - Suicidal ideation [Recovered/Resolved]
  - Mental impairment [Recovering/Resolving]
  - Anxiety [Recovering/Resolving]
  - Depression [Recovered/Resolved]
  - Product quality issue [None]
  - Complication associated with device [None]
